FAERS Safety Report 6528035-3 (Version None)
Quarter: 2010Q1

REPORT INFORMATION
  Report Type: 
  Country: None (occurrence: None)
  Receive Date: 20100106
  Receipt Date: 20100104
  Transmission Date: 20100710
  Serious: Yes (Hospitalization)
  Sender: FDA-Public Use
  Company Number: US-BRISTOL-MYERS SQUIBB COMPANY-14904049

PATIENT
  Age: 71 Year
  Sex: Female
  Weight: 82 kg

DRUGS (11)
  1. SPRYCEL [Suspect]
     Dosage: DOSE DECREASED ON 24DEC09 AND INTERRUPTED ON WEEKEND OF 02JAN10.
     Dates: start: 20091218
  2. TYLENOL (CAPLET) [Concomitant]
  3. XANAX [Concomitant]
  4. CEFEPIMA [Concomitant]
  5. CIPRO [Concomitant]
  6. GABAPENTIN [Concomitant]
  7. NOVOLOG [Concomitant]
  8. PREVACID [Concomitant]
  9. MICAFUNGIN SODIUM [Concomitant]
  10. VANCOMYCIN [Concomitant]
  11. ZOLOFT [Concomitant]

REACTIONS (1)
  - RESPIRATORY FAILURE [None]
